FAERS Safety Report 20091732 (Version 1)
Quarter: 2021Q4

REPORT INFORMATION
  Report Type: Spontaneous
  Country: CA (occurrence: CA)
  Receive Date: 20211119
  Receipt Date: 20211119
  Transmission Date: 20220303
  Serious: Yes (Hospitalization)
  Sender: FDA-Public Use
  Company Number: CA-TEVA-2021-CA-1978027

PATIENT
  Age: 74 Year
  Sex: Male
  Weight: 79 kg

DRUGS (20)
  1. CARBOPLATIN [Suspect]
     Active Substance: CARBOPLATIN
     Indication: Lung neoplasm malignant
     Route: 042
  2. GEMCITABINE [Suspect]
     Active Substance: GEMCITABINE
     Indication: Lung neoplasm malignant
     Route: 042
  3. ACETAMINOPHEN [Concomitant]
     Active Substance: ACETAMINOPHEN
  4. ASPIRIN [Concomitant]
     Active Substance: ASPIRIN
     Route: 065
  5. ATORVASTATIN [Concomitant]
     Active Substance: ATORVASTATIN
  6. BISOPROLOL [Concomitant]
     Active Substance: BISOPROLOL
  7. CITALOPRAM [Concomitant]
     Active Substance: CITALOPRAM HYDROBROMIDE
  8. CLOPIDOGREL [Concomitant]
     Active Substance: CLOPIDOGREL BISULFATE
  9. EZETIMIBE [Concomitant]
     Active Substance: EZETIMIBE
  10. GRAVOL [Concomitant]
     Active Substance: DIMENHYDRINATE
  11. LORAZEPAM [Concomitant]
     Active Substance: LORAZEPAM
  12. MAGNESIUM OXIDE [Concomitant]
     Active Substance: MAGNESIUM OXIDE
  13. MIRTAZAPINE [Concomitant]
     Active Substance: MIRTAZAPINE
  14. NITROGLYCERIN [Concomitant]
     Active Substance: NITROGLYCERIN
  15. NITROGLYCERIN [Concomitant]
     Active Substance: NITROGLYCERIN
  16. PANTOPRAZOLE [Concomitant]
     Active Substance: PANTOPRAZOLE
  17. POLYETHYLENE GLYCOL [Concomitant]
     Active Substance: POLYETHYLENE GLYCOL
  18. QUETIAPINE [Concomitant]
     Active Substance: QUETIAPINE
  19. SPIRONOLACTONE [Concomitant]
     Active Substance: SPIRONOLACTONE
  20. TELMISARTAN [Concomitant]
     Active Substance: TELMISARTAN

REACTIONS (1)
  - Pancytopenia [Recovered/Resolved]
